FAERS Safety Report 9465999 (Version 1)
Quarter: 2013Q3

REPORT INFORMATION
  Report Type: Spontaneous
  Country: US (occurrence: US)
  Receive Date: 20130820
  Receipt Date: 20130820
  Transmission Date: 20140515
  Serious: No
  Sender: FDA-Public Use
  Company Number: US-MYLANLABS-2012S1018684

PATIENT
  Age: 50 Year
  Sex: Female
  Weight: 56.7 kg

DRUGS (8)
  1. TEMAZEPAM CAPSULES [Suspect]
     Indication: INSOMNIA
     Route: 048
     Dates: start: 201208, end: 20120830
  2. TETRABENAZINE [Concomitant]
     Indication: CHOREA
     Dates: start: 201206
  3. ADVAIR [Concomitant]
  4. ALBUTEROL [Concomitant]
  5. SINGULAR [Concomitant]
  6. CO Q10 [Concomitant]
  7. VITAMIN B COMPLEX [Concomitant]
  8. FLONASE [Concomitant]

REACTIONS (3)
  - Drug ineffective [Not Recovered/Not Resolved]
  - Insomnia [Not Recovered/Not Resolved]
  - Extra dose administered [Recovered/Resolved]
